FAERS Safety Report 6979595-X (Version None)
Quarter: 2010Q3

REPORT INFORMATION
  Report Type: 
  Country: None (occurrence: None)
  Receive Date: 20100910
  Receipt Date: 20100910
  Transmission Date: 20110219
  Serious: Yes (Hospitalization)
  Sender: FDA-Public Use
  Company Number: None

PATIENT
  Sex: Female
  Weight: 11.3399 kg

DRUGS (1)
  1. NIX [Suspect]
     Indication: LICE INFESTATION
     Dosage: SHAMPOOED HAIR ONE TIME
     Dates: start: 20100819, end: 20100819

REACTIONS (1)
  - CONVULSION [None]
